FAERS Safety Report 7089086-6 (Version None)
Quarter: 2010Q4

REPORT INFORMATION
  Report Type: 
  Country: None (occurrence: None)
  Receive Date: 20101108
  Receipt Date: 20101108
  Transmission Date: 20110411
  Serious: Yes (Other)
  Sender: FDA-Public Use
  Company Number: B0683143A

PATIENT

DRUGS (1)
  1. AVAMYS [Suspect]
     Indication: RHINITIS
     Route: 065
     Dates: start: 20101027

REACTIONS (3)
  - PRURITUS GENERALISED [None]
  - RASH GENERALISED [None]
  - VIITH NERVE PARALYSIS [None]
